FAERS Safety Report 9419144 (Version 2)
Quarter: 2013Q4

REPORT INFORMATION
  Report Type: Spontaneous
  Country: IE (occurrence: IE)
  Receive Date: 20130725
  Receipt Date: 20131003
  Transmission Date: 20140711
  Serious: Yes (Death)
  Sender: FDA-Public Use
  Company Number: IE-AMGEN-IRLSP2013051671

PATIENT
  Age: 66 Year
  Sex: Male
  Weight: 46 kg

DRUGS (9)
  1. NEULASTA [Suspect]
     Indication: SMALL CELL LUNG CANCER
     Dosage: 6 MG, POST CHEMO THREE WEEKLY
     Route: 058
     Dates: start: 20130629, end: 20130629
  2. CHEMOTHERAPEUTICS [Concomitant]
     Dosage: UNK
  3. TARGIN [Concomitant]
     Dosage: UNK
     Route: 065
  4. CARDICOR [Concomitant]
     Dosage: UNK
     Route: 065
  5. LYRICA [Concomitant]
     Dosage: UNK
     Route: 065
  6. MOTILIUM                           /00498201/ [Concomitant]
     Dosage: UNK
     Route: 065
  7. AMITRIPTYLINE [Concomitant]
     Dosage: UNK
     Route: 065
  8. OXYNORM [Concomitant]
     Dosage: UNK
     Route: 065
  9. ASPIRIN [Concomitant]
     Dosage: UNK
     Route: 065

REACTIONS (1)
  - Lung neoplasm malignant [Fatal]
